FAERS Safety Report 4594913-8 (Version None)
Quarter: 2005Q1

REPORT INFORMATION
  Report Type: 
  Country: None (occurrence: None)
  Receive Date: 20050224
  Receipt Date: 20030620
  Transmission Date: 20050727
  Serious: Yes (Hospitalization)
  Sender: FDA-Public Use
  Company Number: GXKR2003GB00449

PATIENT
  Age: 66 Year
  Sex: Female

DRUGS (3)
  1. LORAZEPAM [Suspect]
     Dosage: 1 MG, QHS, ORAL
     Route: 048
     Dates: start: 20030528
  2. FLUPHENAZINE [Suspect]
     Indication: SCHIZOPHRENIA
     Dosage: 25 MG, INTRAMUSCULAR
     Route: 030
     Dates: end: 20030223
  3. RISPERDAL [Suspect]
     Indication: SCHIZOPHRENIA
     Dosage: ORAL
     Route: 048
     Dates: start: 20030527

REACTIONS (3)
  - CONFUSIONAL STATE [None]
  - SEDATION [None]
  - URINARY TRACT INFECTION [None]
